FAERS Safety Report 7071289-8 (Version None)
Quarter: 2010Q4

REPORT INFORMATION
  Report Type: 
  Country: None (occurrence: None)
  Receive Date: 20101029
  Receipt Date: 20100823
  Transmission Date: 20110411
  Serious: No
  Sender: FDA-Public Use
  Company Number: A0867214A

PATIENT
  Age: 66 Year
  Sex: Female

DRUGS (14)
  1. FLOVENT [Suspect]
     Indication: ASTHMA
     Dosage: 1PUFF TWICE PER DAY
     Route: 055
     Dates: start: 20100307
  2. COREG [Concomitant]
  3. LASIX [Concomitant]
  4. GLIMEPIRIDE [Concomitant]
  5. ASPIRIN [Concomitant]
  6. POTASSIUM CHLORIDE [Concomitant]
  7. ZETIA [Concomitant]
  8. LIPITOR [Concomitant]
  9. SINGULAIR [Concomitant]
  10. SYNTHROID [Concomitant]
  11. LOVAZA [Concomitant]
  12. XOPENEX [Concomitant]
  13. NITROSPRAY [Concomitant]
  14. UNKNOWN MEDICATION [Concomitant]
     Indication: GASTRIC DISORDER

REACTIONS (3)
  - CONDITION AGGRAVATED [None]
  - DRUG INEFFECTIVE [None]
  - PRODUCT QUALITY ISSUE [None]
